FAERS Safety Report 15211683 (Version 1)
Quarter: 2018Q3

REPORT INFORMATION
  Report Type: Spontaneous
  Country: DE (occurrence: DE)
  Receive Date: 20180729
  Receipt Date: 20180729
  Transmission Date: 20181010
  Serious: Yes (Other)
  Sender: FDA-Public Use
  Company Number: PHHY2018DE053522

PATIENT
  Sex: Male

DRUGS (10)
  1. VINCRISTINE [Suspect]
     Active Substance: VINCRISTINE
     Indication: PRODUCT USED FOR UNKNOWN INDICATION
     Dosage: UNK
     Route: 065
  2. TRETINOIN. [Suspect]
     Active Substance: TRETINOIN
     Indication: PRODUCT USED FOR UNKNOWN INDICATION
     Dosage: 25 MG/M2, UNK
     Route: 048
  3. VITAMIN E [Suspect]
     Active Substance: .ALPHA.-TOCOPHEROL
     Indication: EWING^S SARCOMA
     Dosage: 400 IE
     Route: 048
  4. TRIAMTERENE. [Suspect]
     Active Substance: TRIAMTERENE
     Indication: EWING^S SARCOMA
     Dosage: 25 MG, UNK
     Route: 048
  5. ARSENIC TRIOXIDE [Suspect]
     Active Substance: ARSENIC TRIOXIDE
     Indication: EWING^S SARCOMA
     Dosage: 0.1 MG/KG, UNK
     Route: 048
  6. VORINOSTAT [Suspect]
     Active Substance: VORINOSTAT
     Indication: EWING^S SARCOMA
     Dosage: 400 MG, UNK
     Route: 048
  7. VORINOSTAT [Suspect]
     Active Substance: VORINOSTAT
     Dosage: 300 MG, UNK
     Route: 048
  8. SORAFENIB [Suspect]
     Active Substance: SORAFENIB
     Indication: PRODUCT USED FOR UNKNOWN INDICATION
     Dosage: 400 MG, UNK
     Route: 048
  9. PACLITAXEL. [Suspect]
     Active Substance: PACLITAXEL
     Indication: PRODUCT USED FOR UNKNOWN INDICATION
     Dosage: 200 MG/M2, UNK
     Route: 042
  10. CRIZOTINIB [Suspect]
     Active Substance: CRIZOTINIB
     Indication: EWING^S SARCOMA
     Dosage: 500 MG, UNK
     Route: 048

REACTIONS (4)
  - Thrombocytopenia [Unknown]
  - Activated partial thromboplastin time prolonged [Unknown]
  - Lymphopenia [Unknown]
  - Anaemia [Unknown]
